FAERS Safety Report 8864215 (Version 1)
Quarter: 2012Q4

REPORT INFORMATION
  Report Type: 
  Country: US (occurrence: US)
  Receive Date: 20121024
  Receipt Date: 20121024
  Transmission Date: 20130627
  Serious: No
  Sender: FDA-Public Use
  Company Number: US-AMGEN-USASP2011066408

PATIENT
  Age: 74 Year
  Sex: Male
  Weight: 77.1 kg

DRUGS (4)
  1. ENBREL [Suspect]
     Indication: PRODUCT USED FOR UNKNOWN INDICATION
     Dosage: 50 mg, qwk
  2. ATENOLOL [Concomitant]
     Dosage: 50 mg, UNK
  3. WARFARIN [Concomitant]
     Dosage: 2.5 mg, UNK
  4. ASA ARTHRITIS STRENGTH ASPIRIN [Concomitant]
     Dosage: 81 mg, UNK

REACTIONS (2)
  - Wheezing [Unknown]
  - Cough [Unknown]
